FAERS Safety Report 7387686-7 (Version None)
Quarter: 2011Q1

REPORT INFORMATION
  Report Type: 
  Country: None (occurrence: None)
  Receive Date: 20110331
  Receipt Date: 20101029
  Transmission Date: 20110831
  Serious: Yes (Other)
  Sender: FDA-Public Use
  Company Number: US-BAYER-201020450NA

PATIENT
  Sex: Female
  Weight: 115.19 kg

DRUGS (5)
  1. ANTIINFLAMMATORY/ANTIRHEUMATIC NON-STEROIDS [Concomitant]
  2. GLUCOPHAGE [Concomitant]
  3. SPIRONOLACTONE [Concomitant]
  4. METFORMIN HCL [Concomitant]
  5. YAZ [Suspect]
     Indication: PRODUCT USED FOR UNKNOWN INDICATION
     Dosage: AS USED DOSE: UNK
     Route: 048

REACTIONS (5)
  - GALLBLADDER DISORDER [None]
  - PROCEDURAL PAIN [None]
  - CHOLECYSTITIS [None]
  - PAIN [None]
  - DYSPNOEA [None]
